FAERS Safety Report 14293686 (Version 1)
Quarter: 2017Q4

REPORT INFORMATION
  Report Type: Spontaneous
  Country: PK (occurrence: PK)
  Receive Date: 20171216
  Receipt Date: 20171216
  Transmission Date: 20180321
  Serious: Yes (Death, Hospitalization)
  Sender: FDA-Public Use
  Company Number: PK-ROCHE-2039749

PATIENT
  Age: 55 Year
  Sex: Male
  Weight: 48 kg

DRUGS (1)
  1. RISTOVA [Suspect]
     Active Substance: RITUXIMAB
     Indication: LYMPHOMA
     Dosage: PARENTERAL
     Route: 042
     Dates: start: 20170815

REACTIONS (3)
  - Diarrhoea [Unknown]
  - Discoloured vomit [Unknown]
  - Death [Fatal]

NARRATIVE: CASE EVENT DATE: 20171211
